FAERS Safety Report 20743994 (Version 2)
Quarter: 2022Q2

REPORT INFORMATION
  Report Type: Spontaneous
  Country: IT (occurrence: IT)
  Receive Date: 20220425
  Receipt Date: 20220502
  Transmission Date: 20220721
  Serious: Yes (Death, Hospitalization, Other)
  Sender: FDA-Public Use
  Company Number: IT-GSKCCFEMEA-Case-01456013_AE-56400

PATIENT
  Age: 83 Year
  Sex: Female

DRUGS (14)
  1. LEVOFLOXACIN [Suspect]
     Active Substance: LEVOFLOXACIN
     Indication: Product used for unknown indication
     Dosage: 4 DOSAGE FORM, QD (500 MG)
  2. LEVOFLOXACIN [Suspect]
     Active Substance: LEVOFLOXACIN
     Indication: Product used for unknown indication
     Dosage: 4 DOSAGE FORM, QD (4 DF, QD 500 MG) (2 AT 12 PM AND 12 HOURS LATER ANOTHER TWO)
  3. INFLUENZA VIRUS VACCINE [Suspect]
     Active Substance: INFLUENZA VIRUS VACCINE
     Indication: Prophylaxis
     Dosage: UNK
  4. CHOLINE [Suspect]
     Active Substance: CHOLINE
     Indication: Glaucoma
     Dosage: UNK
  5. LEVOTHYROXINE SODIUM [Suspect]
     Active Substance: LEVOTHYROXINE SODIUM
     Indication: Product used for unknown indication
     Dosage: UNK, 100
  6. COVID-19 VACCINE NOS [Suspect]
     Active Substance: COVID-19 VACCINE NOS
     Indication: COVID-19 prophylaxis
     Dosage: UNK
  7. AUGMENTIN [Suspect]
     Active Substance: AMOXICILLIN\CLAVULANATE POTASSIUM
     Indication: Product used for unknown indication
     Dosage: UNK
  8. HEPARIN [Suspect]
     Active Substance: HEPARIN SODIUM
     Indication: Product used for unknown indication
     Dosage: UNK
  9. CORDARONE [Concomitant]
     Active Substance: AMIODARONE HYDROCHLORIDE
     Indication: Product used for unknown indication
     Dosage: UNK. 200
  10. BISOPROLOL [Concomitant]
     Active Substance: BISOPROLOL
     Indication: Product used for unknown indication
     Dosage: UNK, 1.25
  11. CHOLINE ALFOSCERATE [Concomitant]
     Active Substance: CHOLINE ALFOSCERATE
     Indication: Product used for unknown indication
     Dosage: UNK
  12. CHOLINE ALFOSCERATE [Concomitant]
     Active Substance: CHOLINE ALFOSCERATE
     Dosage: UNK, 600
  13. SIMVASTATIN [Concomitant]
     Active Substance: SIMVASTATIN
     Indication: Product used for unknown indication
     Dosage: UNK, 20
  14. LATANOPROST [Concomitant]
     Active Substance: LATANOPROST
     Indication: Product used for unknown indication
     Dosage: UNK, 50

REACTIONS (18)
  - Death [Fatal]
  - Intestinal obstruction [Unknown]
  - Fasciitis [Unknown]
  - Fat necrosis [Unknown]
  - Peripheral swelling [Unknown]
  - Skin lesion [Unknown]
  - General physical health deterioration [Unknown]
  - Somnolence [Unknown]
  - Syncope [Unknown]
  - Pain [Unknown]
  - Seizure [Unknown]
  - Vomiting [Unknown]
  - Eating disorder [Unknown]
  - Pigmentation disorder [Unknown]
  - Nervous system disorder [Unknown]
  - Confusional state [Unknown]
  - Product prescribing error [Unknown]
  - Extra dose administered [Unknown]

NARRATIVE: CASE EVENT DATE: 20211101
